FAERS Safety Report 11608430 (Version 1)
Quarter: 2015Q4

REPORT INFORMATION
  Report Type: Other
  Country: GB (occurrence: GB)
  Receive Date: 20151007
  Receipt Date: 20151007
  Transmission Date: 20160304
  Serious: Yes (Disabling, Other)
  Sender: FDA-Public Use
  Company Number: GB-MYLANLABS-2015M1032749

PATIENT

DRUGS (7)
  1. ATORVASTATIN [Concomitant]
     Active Substance: ATORVASTATIN
     Dosage: 1 DF, QD
     Dates: start: 20150916
  2. BIMATOPROST. [Concomitant]
     Active Substance: BIMATOPROST
     Dosage: 1 GTT, QD
     Dates: start: 20150619
  3. SILDENAFIL. [Concomitant]
     Active Substance: SILDENAFIL
     Dosage: USE AS DIRECTED.
     Dates: start: 20140819
  4. SIMVASTATIN. [Suspect]
     Active Substance: SIMVASTATIN
     Dosage: UNK
     Dates: start: 201406, end: 201503
  5. AZOPT [Concomitant]
     Active Substance: BRINZOLAMIDE
     Dosage: 1 GTT, BID
     Dates: start: 20150220
  6. MEBEVERINE HYDROCHLORIDE [Concomitant]
     Active Substance: MEBEVERINE HYDROCHLORIDE
     Dosage: 1 DF, TID (30 MINUTES BEFORE FOOD.)
     Dates: start: 20150220, end: 20150916
  7. LUMIGAN [Concomitant]
     Active Substance: BIMATOPROST
     Dosage: 1 GTT, QD (IN THE EVENING.)
     Dates: start: 20150220, end: 20150619

REACTIONS (2)
  - Tendon rupture [Recovered/Resolved]
  - Myalgia [Unknown]

NARRATIVE: CASE EVENT DATE: 201503
